FAERS Safety Report 8853104 (Version 2)
Quarter: 2013Q3

REPORT INFORMATION
  Report Type: Spontaneous
  Country: US (occurrence: US)
  Receive Date: 20121022
  Receipt Date: 20130722
  Transmission Date: 20140515
  Serious: Yes (Hospitalization, Other)
  Sender: FDA-Public Use
  Company Number: US-ROCHE-1117080

PATIENT
  Age: 15 Year
  Sex: Male

DRUGS (3)
  1. NUTROPIN [Suspect]
     Indication: SILVER-RUSSELL SYNDROME
     Route: 065
     Dates: start: 19991201, end: 20070911
  2. NUTROPIN [Suspect]
     Indication: NOONAN SYNDROME
  3. NUTROPIN [Suspect]
     Indication: ALAGILLE SYNDROME

REACTIONS (2)
  - Cerebral disorder [Unknown]
  - Moyamoya disease [Recovered/Resolved]
